FAERS Safety Report 5926334-7 (Version None)
Quarter: 2008Q4

REPORT INFORMATION
  Report Type: 
  Country: None (occurrence: None)
  Receive Date: 20081017
  Receipt Date: 20081002
  Transmission Date: 20090506
  Serious: Yes (Hospitalization)
  Sender: FDA-Public Use
  Company Number: 1000001300

PATIENT
  Age: 64 Year
  Sex: Female

DRUGS (7)
  1. CITALOPRAM HYDROBROMIDE [Suspect]
     Indication: DEPRESSION
     Dosage: 0.5 DOSAGE FORMS (0.5 DOSAGE FORMS, 1 IN 1 D), ORAL
     Route: 048
     Dates: end: 20080512
  2. LEXOMIL [Suspect]
     Indication: ANXIETY
     Dosage: 0.75 DOSAGE FORMS (0.75 DOSAGE FORMS, 1 IN 1 D), ORAL
     Route: 048
     Dates: end: 20080512
  3. PREVISCAN (20 MILLIGRAM, TABLETS) [Suspect]
     Indication: DEEP VEIN THROMBOSIS
     Dosage: 10 MG (10 MG, 1 IN 1 D), ORAL
     Route: 048
     Dates: end: 20080512
  4. GLUCOR (100 MILLIGRAM, TABLETS) [Concomitant]
  5. BRIAZIDE (TABLETS) [Concomitant]
  6. KERLONE (20 MILLIGRAM, TABLETS) [Concomitant]
  7. DIAMICRON (30 MILLIGRAM, TABLETS) [Concomitant]

REACTIONS (8)
  - ANTICOAGULATION DRUG LEVEL ABOVE THERAPEUTIC [None]
  - FALL [None]
  - LOSS OF CONSCIOUSNESS [None]
  - MALAISE [None]
  - MENINGORRHAGIA [None]
  - OVERDOSE [None]
  - PERIORBITAL HAEMATOMA [None]
  - SUBDURAL HAEMATOMA [None]
